FAERS Safety Report 9900839 (Version 2)
Quarter: 2014Q1

REPORT INFORMATION
  Report Type: Report from Study
  Country: AU (occurrence: AU)
  Receive Date: 20140217
  Receipt Date: 20140307
  Transmission Date: 20141002
  Serious: Yes (Other)
  Sender: FDA-Public Use
  Company Number: AU-BAYER-2014-019871

PATIENT
  Sex: Male
  Weight: 85 kg

DRUGS (6)
  1. REGORAFENIB [Suspect]
     Indication: COLORECTAL CANCER METASTATIC
     Dosage: 120 MG, QD
     Route: 048
     Dates: start: 20140102, end: 20140120
  2. REGORAFENIB [Suspect]
     Indication: COLORECTAL CANCER METASTATIC
     Dosage: RESTARTED
     Dates: start: 20140212
  3. OXYCONTIN [Concomitant]
     Indication: PAIN
     Dosage: 40 MG, BID
     Dates: start: 201308
  4. DOCUSATE SODIUM\SENNOSIDES [Concomitant]
     Indication: CONSTIPATION
     Dosage: TT BID
     Dates: start: 201309
  5. ATACAND [CANDESARTAN CILEXETIL] [Concomitant]
     Indication: HYPERTENSION
  6. ZANIDIP [Concomitant]
     Indication: HYPERTENSION

REACTIONS (3)
  - Pleural effusion [Recovered/Resolved]
  - Dyspnoea [Recovered/Resolved]
  - Fatigue [Recovered/Resolved]
